FAERS Safety Report 8141501-2 (Version None)
Quarter: 2012Q1

REPORT INFORMATION
  Report Type: 
  Country: None (occurrence: None)
  Receive Date: 20120216
  Receipt Date: 20120210
  Transmission Date: 20120608
  Serious: Yes (Hospitalization, Other)
  Sender: FDA-Public Use
  Company Number: US-PFIZER INC-2011300606

PATIENT
  Sex: Male
  Weight: 10.431 kg

DRUGS (4)
  1. XYNTHA [Suspect]
     Indication: FACTOR VIII DEFICIENCY
     Dosage: 250 IU, WEEKLY AS PROPHYLAXIS
     Route: 042
     Dates: start: 20100825, end: 20111024
  2. XYNTHA [Suspect]
     Dosage: 250-500 IU AS NEEDED FOR BLEEDING
     Route: 042
  3. AMICAR [Concomitant]
     Indication: HAEMORRHAGE
     Dosage: UNK
     Dates: start: 20111021
  4. HUMATE-P [Concomitant]
     Dosage: 50U/KG ONCE
     Dates: start: 20111023, end: 20111023

REACTIONS (2)
  - MOUTH HAEMORRHAGE [None]
  - FACTOR VIII INHIBITION [None]
